FAERS Safety Report 16134327 (Version 1)
Quarter: 2019Q1

REPORT INFORMATION
  Report Type: Spontaneous
  Country: US (occurrence: US)
  Receive Date: 20190329
  Receipt Date: 20190329
  Transmission Date: 20190418
  Serious: No
  Sender: FDA-Public Use
  Company Number: US-JNJFOC-20190302172

PATIENT
  Age: 71 Year
  Sex: Female
  Weight: 47.63 kg

DRUGS (2)
  1. WOMENS ROGAINE UNSCENTED [Suspect]
     Active Substance: MINOXIDIL
     Route: 061
  2. WOMENS ROGAINE UNSCENTED [Suspect]
     Active Substance: MINOXIDIL
     Indication: ALOPECIA
     Dosage: HALF CAPFUL, ONCE DAILY, BESIDES ON SUNDAY
     Route: 061

REACTIONS (2)
  - Hair growth abnormal [Not Recovered/Not Resolved]
  - Inappropriate schedule of product administration [Unknown]
